FAERS Safety Report 7466046-4 (Version None)
Quarter: 2011Q2

REPORT INFORMATION
  Report Type: 
  Country: None (occurrence: None)
  Receive Date: 20110509
  Receipt Date: 20101209
  Transmission Date: 20111010
  Serious: No
  Sender: FDA-Public Use
  Company Number: US-SANOFI-AVENTIS-2010SA075873

PATIENT
  Age: 58 Year
  Sex: Female

DRUGS (2)
  1. LANTUS [Suspect]
     Indication: INSULIN-REQUIRING TYPE 2 DIABETES MELLITUS
     Dosage: PRODUCT START DATE: 2-3 YEARS AGO
  2. APIDRA [Suspect]
     Indication: INSULIN-REQUIRING TYPE 2 DIABETES MELLITUS
     Dosage: ON SLIDING SCALE AND UP TO 5 TIMS A DAY.
     Route: 058

REACTIONS (4)
  - BLOOD GLUCOSE INCREASED [None]
  - GLYCOSYLATED HAEMOGLOBIN INCREASED [None]
  - BLOOD GLUCOSE DECREASED [None]
  - WEIGHT DECREASED [None]
